FAERS Safety Report 8474777-2 (Version None)
Quarter: 2012Q2

REPORT INFORMATION
  Report Type: 
  Country: None (occurrence: None)
  Receive Date: 20120628
  Receipt Date: 20120623
  Transmission Date: 20120825
  Serious: Yes (Other)
  Sender: FDA-Public Use
  Company Number: SA-PFIZER INC-2012151854

PATIENT
  Sex: Male

DRUGS (2)
  1. LYRICA [Suspect]
     Indication: NEURALGIA
     Dosage: 75 MG
  2. LYRICA [Suspect]
     Dosage: 300 MG

REACTIONS (3)
  - DIZZINESS [None]
  - DRUG ABUSE [None]
  - ABNORMAL BEHAVIOUR [None]
